FAERS Safety Report 11298473 (Version 1)
Quarter: 2015Q3

REPORT INFORMATION
  Report Type: Spontaneous
  Country: US (occurrence: US)
  Receive Date: 20150722
  Receipt Date: 20150722
  Transmission Date: 20151125
  Serious: No
  Sender: FDA-Public Use
  Company Number: US-ELI_LILLY_AND_COMPANY-US201110001769

PATIENT
  Age: 52 Year
  Sex: Female

DRUGS (3)
  1. EVISTA [Suspect]
     Active Substance: RALOXIFENE HYDROCHLORIDE
     Indication: OSTEOPOROSIS
     Dosage: 60 MG, QD
  2. VITAMINS [Concomitant]
     Active Substance: VITAMINS
  3. SALMON [Concomitant]
     Active Substance: SALMON, UNSPECIFIED
     Indication: OSTEOPOROSIS

REACTIONS (5)
  - Weight increased [Not Recovered/Not Resolved]
  - Muscle spasms [Unknown]
  - Dyspnoea [Unknown]
  - Arthralgia [Unknown]
  - Alopecia [Unknown]
